FAERS Safety Report 5815078-8 (Version None)
Quarter: 2008Q3

REPORT INFORMATION
  Report Type: 
  Country: None (occurrence: None)
  Receive Date: 20080718
  Receipt Date: 20080709
  Transmission Date: 20090109
  Serious: Yes (Hospitalization)
  Sender: FDA-Public Use
  Company Number: JP-ABBOTT-08P-087-0460038-00

PATIENT
  Age: 80 Year
  Sex: Male
  Weight: 52.3 kg

DRUGS (5)
  1. LEUPROLIDE ACETATE [Suspect]
     Indication: PROSTATE CANCER STAGE II
     Route: 058
     Dates: start: 20060801, end: 20070703
  2. LEUPROLIDE ACETATE [Suspect]
     Route: 058
     Dates: start: 20060410, end: 20060704
  3. LEUPROLIDE ACETATE [Suspect]
     Route: 058
  4. CHLORMADINONE ACETATE TAB [Suspect]
     Indication: PROSTATE CANCER STAGE II
     Route: 048
  5. TAMSULOSIN HCL [Suspect]
     Indication: BENIGN PROSTATIC HYPERPLASIA
     Route: 048

REACTIONS (4)
  - ALANINE AMINOTRANSFERASE INCREASED [None]
  - ASPARTATE AMINOTRANSFERASE INCREASED [None]
  - CEREBRAL INFARCTION [None]
  - LIVER DISORDER [None]
